FAERS Safety Report 7652658-1 (Version None)
Quarter: 2011Q3

REPORT INFORMATION
  Report Type: 
  Country: None (occurrence: None)
  Receive Date: 20110802
  Receipt Date: 20110802
  Transmission Date: 20111222
  Serious: Yes (Other)
  Sender: FDA-Public Use
  Company Number: None

PATIENT
  Sex: Female

DRUGS (1)
  1. LETROZOLE [Suspect]
     Indication: BREAST CANCER
     Dosage: 2.5MG DAILY PO
     Route: 048

REACTIONS (4)
  - ONYCHOCLASIS [None]
  - WEIGHT INCREASED [None]
  - PRODUCT SUBSTITUTION ISSUE [None]
  - JOINT SWELLING [None]
